FAERS Safety Report 24058821 (Version 2)
Quarter: 2024Q3

REPORT INFORMATION
  Report Type: Spontaneous
  Country: US (occurrence: US)
  Receive Date: 20240708
  Receipt Date: 20240822
  Transmission Date: 20241016
  Serious: Yes (Hospitalization)
  Sender: BIOGEN
  Company Number: US-BIOGEN-2024BI01272347

PATIENT
  Sex: Male

DRUGS (3)
  1. VUMERITY [Suspect]
     Active Substance: DIROXIMEL FUMARATE
     Indication: Multiple sclerosis
     Route: 050
     Dates: start: 2020, end: 2024
  2. RITUXAN [Suspect]
     Active Substance: RITUXIMAB
     Indication: Hairy cell leukaemia
     Route: 050
  3. CLADRIBINE [Suspect]
     Active Substance: CLADRIBINE
     Indication: Hairy cell leukaemia
     Route: 050

REACTIONS (5)
  - Hairy cell leukaemia [Unknown]
  - Neutropenia [Unknown]
  - Infection [Unknown]
  - Thrombocytopenia [Unknown]
  - Lymphopenia [Unknown]

NARRATIVE: CASE EVENT DATE: 20230101
